FAERS Safety Report 24940191 (Version 5)
Quarter: 2025Q1

REPORT INFORMATION
  Report Type: Spontaneous
  Country: ES (occurrence: ES)
  Receive Date: 20250207
  Receipt Date: 20250327
  Transmission Date: 20250408
  Serious: Yes (Other)
  Sender: CELLTRION
  Company Number: ES-ROCHE-3541345

PATIENT

DRUGS (64)
  1. BEVACIZUMAB [Suspect]
     Active Substance: BEVACIZUMAB
     Indication: Hepatocellular carcinoma
     Route: 042
     Dates: start: 20240131
  2. ATEZOLIZUMAB [Suspect]
     Active Substance: ATEZOLIZUMAB
     Indication: Hepatocellular carcinoma
     Route: 042
     Dates: start: 20240131
  3. TIRAGOLUMAB [Suspect]
     Active Substance: TIRAGOLUMAB
     Indication: Hepatocellular carcinoma
     Route: 042
     Dates: start: 20240131
  4. TIRAGOLUMAB [Suspect]
     Active Substance: TIRAGOLUMAB
     Route: 042
  5. TORSEMIDE [Concomitant]
     Active Substance: TORSEMIDE
     Dates: start: 20231221
  6. TORSEMIDE [Concomitant]
     Active Substance: TORSEMIDE
     Route: 048
  7. EPLERENONE [Concomitant]
     Active Substance: EPLERENONE
     Route: 048
     Dates: start: 20211221
  8. EPLERENONE [Concomitant]
     Active Substance: EPLERENONE
     Route: 048
  9. SACUBITRILO [Concomitant]
     Route: 048
     Dates: start: 20211221
  10. SACUBITRILO [Concomitant]
     Route: 048
  11. VALSARTAN [Concomitant]
     Active Substance: VALSARTAN
     Route: 048
     Dates: start: 20211221
  12. VALSARTAN [Concomitant]
     Active Substance: VALSARTAN
     Route: 048
  13. AERIUS (DESLORATADINE) [Concomitant]
     Active Substance: DESLORATADINE
     Indication: Dermatitis contact
     Route: 048
     Dates: start: 20240521, end: 20240523
  14. CHLORHEXIDINE [Concomitant]
     Active Substance: CHLORHEXIDINE
     Indication: Gingival bleeding
     Route: 048
     Dates: start: 20240527
  15. CHLORHEXIDINE [Concomitant]
     Active Substance: CHLORHEXIDINE
     Indication: Epistaxis
     Route: 048
  16. DIAZEPAM [Concomitant]
     Active Substance: DIAZEPAM
     Indication: Anxiety
     Route: 048
     Dates: start: 2007
  17. DIAZEPAM [Concomitant]
     Active Substance: DIAZEPAM
     Route: 048
  18. DUPHALAC [Concomitant]
     Active Substance: LACTULOSE
     Indication: Constipation
     Route: 048
     Dates: start: 20240118, end: 20240221
  19. EBASTINE [Concomitant]
     Active Substance: EBASTINE
     Indication: Hypersensitivity
     Route: 048
     Dates: start: 20231219
  20. EBASTINE [Concomitant]
     Active Substance: EBASTINE
     Route: 048
     Dates: start: 20240304
  21. EBASTINE [Concomitant]
     Active Substance: EBASTINE
     Route: 048
  22. ELIQUIS [Concomitant]
     Active Substance: APIXABAN
     Route: 048
     Dates: start: 20220321, end: 20240802
  23. ELIQUIS [Concomitant]
     Active Substance: APIXABAN
     Route: 048
     Dates: start: 20240809
  24. BISOPROLOL FUMARATE [Concomitant]
     Active Substance: BISOPROLOL FUMARATE
     Route: 048
     Dates: start: 20220608
  25. BISOPROLOL FUMARATE [Concomitant]
     Active Substance: BISOPROLOL FUMARATE
     Route: 048
  26. EMPAGLIFLOZIN [Concomitant]
     Active Substance: EMPAGLIFLOZIN
     Indication: Type 2 diabetes mellitus
     Route: 048
     Dates: start: 20221003
  27. ENEMA CASEN [PHOSPHORIC ACID SODIUM;SODIUM PHOSPHATE DIBASIC] [Concomitant]
     Indication: Constipation
     Route: 054
     Dates: start: 20240222
  28. ENEMA CASEN [PHOSPHORIC ACID SODIUM;SODIUM PHOSPHATE DIBASIC] [Concomitant]
     Route: 054
     Dates: start: 20240222
  29. ENOXAPARIN [Concomitant]
     Active Substance: ENOXAPARIN
     Route: 030
     Dates: start: 20240803, end: 20240805
  30. ENOXAPARIN [Concomitant]
     Active Substance: ENOXAPARIN
     Route: 030
     Dates: start: 20240803, end: 20240808
  31. EPINEPHRINE HYDROCHLORIDE [Concomitant]
     Active Substance: EPINEPHRINE HYDROCHLORIDE
     Indication: Gingival bleeding
     Route: 061
     Dates: start: 20240527
  32. EPINEPHRINE HYDROCHLORIDE [Concomitant]
     Active Substance: EPINEPHRINE HYDROCHLORIDE
     Indication: Epistaxis
     Route: 061
  33. EZETIMIBE [Concomitant]
     Active Substance: EZETIMIBE
     Indication: Dyslipidaemia
     Route: 048
     Dates: start: 20211221
  34. EZETIMIBE [Concomitant]
     Active Substance: EZETIMIBE
     Route: 048
  35. FISIOCREM [Concomitant]
     Indication: Dermatitis contact
     Route: 061
     Dates: start: 20240518, end: 20240521
  36. FISIOCREM [Concomitant]
     Route: 061
  37. PENTOXIFYLLINE [Concomitant]
     Active Substance: PENTOXIFYLLINE
     Route: 048
     Dates: start: 20230523
  38. PENTOXIFYLLINE [Concomitant]
     Active Substance: PENTOXIFYLLINE
     Route: 048
  39. HYDROCORTISONE [Concomitant]
     Active Substance: HYDROCORTISONE
     Indication: Dermatitis contact
     Route: 061
     Dates: start: 20240524, end: 20240602
  40. HYDROCORTISONE [Concomitant]
     Active Substance: HYDROCORTISONE
     Route: 061
  41. LEXXEMA [Concomitant]
     Indication: Dermatitis contact
     Route: 061
     Dates: start: 20240521, end: 20240523
  42. LEXXEMA [Concomitant]
     Route: 061
  43. MICONAZOLE NITRATE [Concomitant]
     Active Substance: MICONAZOLE NITRATE
     Indication: Dermatitis contact
     Route: 061
     Dates: start: 20240524, end: 20240602
  44. MICONAZOLE NITRATE [Concomitant]
     Active Substance: MICONAZOLE NITRATE
     Route: 061
  45. MOVICOL [Concomitant]
     Active Substance: POLYETHYLENE GLYCOL 3350\POTASSIUM CHLORIDE\SODIUM BICARBONATE\SODIUM CHLORIDE
     Indication: Constipation
     Route: 048
     Dates: start: 20240225, end: 20240227
  46. MORPHINE SULFATE [Concomitant]
     Active Substance: MORPHINE SULFATE
     Indication: Abdominal pain upper
     Route: 048
     Dates: start: 20240619, end: 20240620
  47. NAPHAZOLINE [Concomitant]
     Active Substance: NAPHAZOLINE\NAPHAZOLINE HYDROCHLORIDE
     Indication: Gingival bleeding
     Route: 061
     Dates: start: 20240527
  48. NAPHAZOLINE [Concomitant]
     Active Substance: NAPHAZOLINE\NAPHAZOLINE HYDROCHLORIDE
     Indication: Epistaxis
     Route: 061
  49. PANTOPRAZOLE [Concomitant]
     Active Substance: PANTOPRAZOLE
     Route: 048
     Dates: start: 20211230
  50. ACETAMINOPHEN [Concomitant]
     Active Substance: ACETAMINOPHEN
     Indication: Abdominal pain upper
     Route: 048
     Dates: start: 20240221
  51. ACETAMINOPHEN [Concomitant]
     Active Substance: ACETAMINOPHEN
     Route: 048
  52. PROPOFOL [Concomitant]
     Active Substance: PROPOFOL
     Route: 042
     Dates: start: 20240806, end: 20240806
  53. PROPOFOL [Concomitant]
     Active Substance: PROPOFOL
  54. ROSUVASTATIN [Concomitant]
     Active Substance: ROSUVASTATIN
     Indication: Dyslipidaemia
     Route: 048
     Dates: start: 20211221
  55. ROSUVASTATIN [Concomitant]
     Active Substance: ROSUVASTATIN
     Route: 048
  56. RUTIN [Concomitant]
     Active Substance: RUTIN
     Indication: Gingival bleeding
     Route: 061
     Dates: start: 20240527
  57. RUTIN [Concomitant]
     Active Substance: RUTIN
     Indication: Epistaxis
     Route: 061
  58. SODIUM CITRATE [Concomitant]
     Active Substance: SODIUM CITRATE
     Indication: Constipation
     Route: 054
     Dates: start: 20240217, end: 20240220
  59. SODIUM LAURYL SULFOACETATE [Concomitant]
     Active Substance: SODIUM LAURYL SULFOACETATE
     Indication: Constipation
     Route: 054
     Dates: start: 20240217, end: 20240220
  60. AMIODARONE HYDROCHLORIDE [Concomitant]
     Active Substance: AMIODARONE HYDROCHLORIDE
     Route: 048
     Dates: start: 20230918
  61. AMIODARONE HYDROCHLORIDE [Concomitant]
     Active Substance: AMIODARONE HYDROCHLORIDE
     Route: 048
  62. AMOXICILLIN [Concomitant]
     Active Substance: AMOXICILLIN
     Route: 048
     Dates: start: 20240808, end: 20240828
  63. AMOXICILLIN [Concomitant]
     Active Substance: AMOXICILLIN
     Route: 042
     Dates: start: 20240808, end: 20240808
  64. SORAFENIB [Concomitant]
     Active Substance: SORAFENIB
     Indication: Hepatic cancer
     Route: 048
     Dates: start: 20240905

REACTIONS (2)
  - Hyperthyroidism [Not Recovered/Not Resolved]
  - Intentional product use issue [Unknown]

NARRATIVE: CASE EVENT DATE: 20240404
